FAERS Safety Report 7902815-1 (Version None)
Quarter: 2011Q4

REPORT INFORMATION
  Report Type: 
  Country: None (occurrence: None)
  Receive Date: 20111109
  Receipt Date: 20111101
  Transmission Date: 20120403
  Serious: No
  Sender: FDA-Public Use
  Company Number: US-BIOGENIDEC-2011BI041524

PATIENT
  Sex: Male

DRUGS (6)
  1. AVONEX [Suspect]
     Indication: MULTIPLE SCLEROSIS
     Route: 030
     Dates: start: 20090101, end: 20110901
  2. AVONEX [Suspect]
     Route: 030
     Dates: start: 20110901
  3. ADDERALL 5 [Concomitant]
     Indication: ATTENTION DEFICIT/HYPERACTIVITY DISORDER
  4. SLEEPING MEDICINE (NOS) [Concomitant]
     Indication: INSOMNIA
  5. NEURONTIN [Concomitant]
     Indication: NEUROLOGICAL SYMPTOM
  6. VICODIN [Concomitant]
     Indication: PAIN

REACTIONS (10)
  - AGITATION [None]
  - TREMOR [None]
  - GASTROINTESTINAL DISORDER [None]
  - DEPRESSION [None]
  - MOOD SWINGS [None]
  - STRESS [None]
  - DIARRHOEA [None]
  - DYSKINESIA [None]
  - INFLUENZA LIKE ILLNESS [None]
  - DRUG INEFFECTIVE [None]
